FAERS Safety Report 6751213-5 (Version None)
Quarter: 2010Q2

REPORT INFORMATION
  Report Type: 
  Country: None (occurrence: None)
  Receive Date: 20100602
  Receipt Date: 20100524
  Transmission Date: 20101027
  Serious: Yes (Hospitalization)
  Sender: FDA-Public Use
  Company Number: SG-BAXTER-2010BH014184

PATIENT
  Age: 71 Year
  Sex: Male

DRUGS (3)
  1. GAMMAGARD S/D [Suspect]
     Indication: DRUG USE FOR UNKNOWN INDICATION
     Route: 042
     Dates: start: 20100522, end: 20100522
  2. CLINDAMYCIN [Concomitant]
  3. AZTREONAM [Concomitant]

REACTIONS (6)
  - BODY TEMPERATURE INCREASED [None]
  - GENERALISED ERYTHEMA [None]
  - HYPERTENSION [None]
  - HYPOTENSION [None]
  - PYREXIA [None]
  - TACHYCARDIA [None]
